FAERS Safety Report 25051303 (Version 1)
Quarter: 2025Q1

REPORT INFORMATION
  Report Type: Spontaneous
  Country: US (occurrence: US)
  Receive Date: 20250307
  Receipt Date: 20250307
  Transmission Date: 20250409
  Serious: Yes (Hospitalization)
  Sender: FRESENIUS KABI
  Company Number: US-FreseniusKabi-FK202503698

PATIENT
  Age: 59 Year
  Sex: Male
  Weight: 85.2 kg

DRUGS (16)
  1. FLUOROURACIL [Suspect]
     Active Substance: FLUOROURACIL
     Indication: Colorectal cancer metastatic
     Dosage: FOA: SOLUTION FOR INFUSION?1ST REGIMEN
     Route: 040
     Dates: start: 20220929, end: 20221116
  2. FLUOROURACIL [Suspect]
     Active Substance: FLUOROURACIL
     Dosage: FOA: SOLUTION FOR INFUSION?2ND REGIMEN
     Route: 041
     Dates: start: 20220929, end: 20221116
  3. ELOXATIN [Suspect]
     Active Substance: OXALIPLATIN
     Indication: Colorectal cancer metastatic
     Dosage: FOA: POWDER FOR SOLUTION FOR INFUSION
     Route: 042
     Dates: start: 20220929, end: 20221116
  4. ENCORAFENIB [Suspect]
     Active Substance: ENCORAFENIB
     Indication: Colorectal cancer metastatic
     Route: 048
     Dates: start: 20220929, end: 20221116
  5. CETUXIMAB [Suspect]
     Active Substance: CETUXIMAB
     Indication: Colorectal cancer metastatic
     Dosage: FOA: SOLUTION FOR INFUSION
     Route: 042
     Dates: start: 20220929, end: 20221116
  6. LEUCOVORIN CALCIUM [Suspect]
     Active Substance: LEUCOVORIN CALCIUM
     Indication: Colorectal cancer metastatic
     Dosage: FOA: SOLUTION FOR INJECTION
     Route: 042
     Dates: start: 20220929, end: 20221116
  7. ZOFRAN [Concomitant]
     Active Substance: ONDANSETRON HYDROCHLORIDE
     Indication: Nausea
     Route: 048
     Dates: start: 20221005
  8. ZOFRAN [Concomitant]
     Active Substance: ONDANSETRON HYDROCHLORIDE
     Indication: Vomiting
  9. TENORMIN [Concomitant]
     Active Substance: ATENOLOL
     Indication: Hypertension
     Route: 048
     Dates: start: 20130708, end: 20221112
  10. VARUBI [Concomitant]
     Active Substance: ROLAPITANT
     Indication: Nausea
     Route: 048
     Dates: start: 20221102
  11. VARUBI [Concomitant]
     Active Substance: ROLAPITANT
     Indication: Vomiting
  12. BENADRYL [Concomitant]
     Active Substance: DIPHENHYDRAMINE HYDROCHLORIDE
     Indication: Premedication
     Route: 042
     Dates: start: 20221102
  13. DECADRON [Concomitant]
     Active Substance: DEXAMETHASONE
     Indication: Premedication
     Route: 048
     Dates: start: 20221102
  14. IMODIUM A-D [Concomitant]
     Active Substance: LOPERAMIDE HYDROCHLORIDE
     Indication: Diarrhoea
     Route: 048
     Dates: start: 20221007
  15. LEXAPRO [Concomitant]
     Active Substance: ESCITALOPRAM OXALATE
     Indication: Depression
     Route: 048
     Dates: start: 20220504
  16. ZOVIRAX [Concomitant]
     Active Substance: ACYCLOVIR
     Indication: Herpes simplex
     Route: 048
     Dates: start: 2014

REACTIONS (4)
  - Sepsis [Recovered/Resolved]
  - Cellulitis [Recovered/Resolved with Sequelae]
  - Metabolic encephalopathy [Recovered/Resolved]
  - Ecchymosis [Unknown]

NARRATIVE: CASE EVENT DATE: 20221112
